FAERS Safety Report 7989350-X (Version None)
Quarter: 2011Q4

REPORT INFORMATION
  Report Type: 
  Country: None (occurrence: None)
  Receive Date: 20111219
  Receipt Date: 20111207
  Transmission Date: 20120403
  Serious: Yes (Hospitalization)
  Sender: FDA-Public Use
  Company Number: US-JNJFOC-20111104163

PATIENT
  Sex: Female
  Weight: 54.43 kg

DRUGS (3)
  1. REMICADE [Suspect]
     Route: 042
     Dates: start: 19990101, end: 20080101
  2. REMICADE [Suspect]
     Indication: CROHN'S DISEASE
     Route: 042
     Dates: start: 20080101, end: 20111104
  3. QUESTRAN [Concomitant]
     Indication: CROHN'S DISEASE
     Route: 065
     Dates: start: 19880101

REACTIONS (8)
  - HAEMOGLOBIN DECREASED [None]
  - ANIMAL BITE [None]
  - ADVERSE EVENT [None]
  - HEPATIC HAEMATOMA [None]
  - RECTAL PROLAPSE [None]
  - MUSCULOSKELETAL PAIN [None]
  - INTESTINAL RESECTION [None]
  - NAUSEA [None]
